FAERS Safety Report 7132017-0 (Version None)
Quarter: 2010Q4

REPORT INFORMATION
  Report Type: 
  Country: None (occurrence: None)
  Receive Date: 20101202
  Receipt Date: 20101122
  Transmission Date: 20110411
  Serious: Yes (Life-Threatening, Hospitalization, Other)
  Sender: FDA-Public Use
  Company Number: GB-NAPPMUNDI-GBR-2010-0007421

PATIENT
  Sex: Female

DRUGS (2)
  1. UNIPHYLLIN CONTINUS TABLETS [Suspect]
     Indication: ASTHMA
     Route: 048
  2. AMINOPHYLLINE [Concomitant]
     Indication: ASTHMA
     Route: 042

REACTIONS (3)
  - ASTHMA [None]
  - DRUG EXPOSURE DURING PREGNANCY [None]
  - DRUG LEVEL DECREASED [None]
